FAERS Safety Report 18301900 (Version 1)
Quarter: 2020Q3

REPORT INFORMATION
  Report Type: Spontaneous
  Country: US (occurrence: US)
  Receive Date: 20200923
  Receipt Date: 20200923
  Transmission Date: 20201103
  Serious: Yes (Death)
  Sender: FDA-Public Use
  Company Number: US-PFIZER INC-2019283157

PATIENT
  Age: 81 Year
  Sex: Female
  Weight: 81.18 kg

DRUGS (1)
  1. LYRICA [Suspect]
     Active Substance: PREGABALIN
     Indication: FIBROMYALGIA
     Dosage: 200 MG AT BEDTIME
     Route: 048

REACTIONS (1)
  - Pancreatic carcinoma [Fatal]
